FAERS Safety Report 9281823 (Version 1)
Quarter: 2013Q2

REPORT INFORMATION
  Report Type: Spontaneous
  Country: US (occurrence: US)
  Receive Date: 20130510
  Receipt Date: 20130510
  Transmission Date: 20140414
  Serious: Yes (Other)
  Sender: FDA-Public Use
  Company Number: US-AMGEN-USASP2013032457

PATIENT
  Age: 97 Year
  Sex: Female

DRUGS (1)
  1. PROCRIT [Suspect]
     Indication: NEPHROGENIC ANAEMIA
     Dosage: 2000 UNIT, QMO
     Dates: end: 20121112

REACTIONS (2)
  - Skin cancer [Unknown]
  - Haemoglobin decreased [Unknown]
